FAERS Safety Report 10579407 (Version 4)
Quarter: 2015Q2

REPORT INFORMATION
  Report Type: Spontaneous
  Country: US (occurrence: US)
  Receive Date: 20141112
  Receipt Date: 20150608
  Transmission Date: 20150821
  Serious: Yes (Hospitalization, Other)
  Sender: FDA-Public Use
  Company Number: US-BAYER-2014-166586

PATIENT
  Age: 21 Year
  Sex: Female
  Weight: 44 kg

DRUGS (12)
  1. TYLENOL [Concomitant]
     Active Substance: ACETAMINOPHEN
     Indication: PAIN
  2. CLONAZEPAM. [Concomitant]
     Active Substance: CLONAZEPAM
     Indication: ANXIETY
     Dosage: 1 MG, BID, PRN
     Dates: start: 20120912
  3. MIRENA [Suspect]
     Active Substance: LEVONORGESTREL
     Indication: CONTRACEPTION
     Dosage: 20 MCG/24HR, CONT
     Route: 015
     Dates: start: 20120926, end: 20121104
  4. IBUPROFEN. [Concomitant]
     Active Substance: IBUPROFEN
     Dosage: UNK
     Dates: start: 20120912
  5. CYTOTEC [Concomitant]
     Active Substance: MISOPROSTOL
     Dosage: UNK, 800 MCG
     Route: 054
     Dates: start: 20120912
  6. NICOTIANA TABACUM [Concomitant]
     Dosage: UNK
     Dates: start: 20120912
  7. ATIVAN [Concomitant]
     Active Substance: LORAZEPAM
     Dosage: 1 MG, UNK
     Route: 048
     Dates: start: 20120911
  8. ATARAX [Concomitant]
     Active Substance: HYDROXYZINE\HYDROXYZINE HYDROCHLORIDE
     Dosage: 100 MG, UNK
     Route: 048
     Dates: start: 20120912
  9. TRAMADOL [Concomitant]
     Active Substance: TRAMADOL
     Dosage: 50 MG,THREE TIMES A DAY PRN
     Route: 048
     Dates: start: 20121104
  10. MORPHINE [Concomitant]
     Active Substance: MORPHINE
     Dosage: 2 MG EVERY 30 MINUTES, PRN
     Route: 042
     Dates: start: 20120912
  11. PRENATAL VITAMINS [Concomitant]
     Active Substance: VITAMINS
     Dosage: UNK
     Dates: start: 20120912
  12. LORTAB [Concomitant]
     Active Substance: ACETAMINOPHEN\HYDROCODONE BITARTRATE
     Indication: PAIN
     Dosage: 5/500 MG EVERY FOUR HOURS, PRN
     Dates: start: 20120912

REACTIONS (12)
  - Vaginal haemorrhage [None]
  - Anaemia [None]
  - Pelvic pain [None]
  - Menorrhagia [None]
  - Genital haemorrhage [None]
  - Abdominal pain [None]
  - Abnormal loss of weight [None]
  - Device dislocation [None]
  - Loss of consciousness [None]
  - Injury [None]
  - Maternal exposure before pregnancy [None]
  - Abortion spontaneous [None]

NARRATIVE: CASE EVENT DATE: 201209
